FAERS Safety Report 12791385 (Version 1)
Quarter: 2016Q3

REPORT INFORMATION
  Report Type: Spontaneous
  Country: ES (occurrence: ES)
  Receive Date: 20160929
  Receipt Date: 20160929
  Transmission Date: 20161109
  Serious: Yes (Hospitalization)
  Sender: FDA-Public Use
  Company Number: ES-NORTHSTAR HEALTHCARE HOLDINGS-ES-2016NSR001848

PATIENT
  Age: 65 Year
  Sex: Female

DRUGS (4)
  1. FLECAINIDE [Suspect]
     Active Substance: FLECAINIDE
     Indication: ARRHYTHMIA PROPHYLAXIS
     Dosage: 50 MG, Q12H
  2. BISOPROLOL [Concomitant]
     Active Substance: BISOPROLOL
     Indication: ARRHYTHMIA PROPHYLAXIS
     Dosage: 2.5 MG, Q12H
  3. HYDROXYZINE HYDROCHLORIDE. [Suspect]
     Active Substance: HYDROXYZINE HYDROCHLORIDE
     Indication: RASH PRURITIC
     Dosage: 25 MG, QD
  4. LORATADINE. [Suspect]
     Active Substance: LORATADINE
     Indication: RASH PRURITIC
     Dosage: 10 MG, QD
     Route: 048

REACTIONS (6)
  - Cardiac arrest [Recovered/Resolved]
  - Electrocardiogram QT prolonged [Recovered/Resolved]
  - Ventricular fibrillation [Recovered/Resolved]
  - Atrial fibrillation [Recovered/Resolved]
  - Drug interaction [Recovered/Resolved]
  - Torsade de pointes [Recovered/Resolved]
